FAERS Safety Report 12275188 (Version 1)
Quarter: 2016Q2

REPORT INFORMATION
  Report Type: Spontaneous
  Country: US (occurrence: US)
  Receive Date: 20160415
  Receipt Date: 20160415
  Transmission Date: 20160815
  Serious: No
  Sender: FDA-Public Use
  Company Number: US-ALLERGAN-1600685US

PATIENT
  Sex: Female

DRUGS (1)
  1. LUMIGAN [Suspect]
     Active Substance: BIMATOPROST
     Indication: GLAUCOMA
     Dosage: 1 GTT, QHS
     Route: 047
     Dates: start: 2014, end: 2015

REACTIONS (6)
  - Dry skin [Recovered/Resolved]
  - Eye irritation [Recovered/Resolved]
  - Visual acuity reduced [Not Recovered/Not Resolved]
  - Hair texture abnormal [Recovered/Resolved]
  - Corneal disorder [Not Recovered/Not Resolved]
  - Rash [Recovered/Resolved]

NARRATIVE: CASE EVENT DATE: 2015
